FAERS Safety Report 10404278 (Version 1)
Quarter: 2014Q1

REPORT INFORMATION
  Report Type: Spontaneous
  Country: US (occurrence: None)
  Receive Date: 20140228
  Receipt Date: 20140228
  Transmission Date: 20141002
  Serious: Yes (Other)
  Sender: FDA-Public Use
  Company Number: PHEH2012US002594

PATIENT
  Age: 56 Year
  Sex: Female

DRUGS (5)
  1. TEGRETOL-XR [Suspect]
     Indication: GRAND MAL CONVULSION
  2. TEGRETOL [Suspect]
     Indication: GRAND MAL CONVULSION
     Dosage: 3 IN THE MORNING, 2 AT NOON AND 3 AT NIGHT
  3. LAMICTAL [Suspect]
     Indication: CONVULSION
     Route: 048
  4. ATORVASTATIN [Concomitant]
  5. LISINOPRIL [Concomitant]

REACTIONS (11)
  - Convulsion [None]
  - Tongue biting [None]
  - Loss of consciousness [None]
  - Foaming at mouth [None]
  - Pneumonia aspiration [None]
  - Somnolence [None]
  - Drug hypersensitivity [None]
  - Anticonvulsant drug level increased [None]
  - Dyskinesia [None]
  - Aura [None]
  - Drug ineffective [None]
